FAERS Safety Report 23336122 (Version 1)
Quarter: 2023Q4

REPORT INFORMATION
  Report Type: Spontaneous
  Country: JP (occurrence: JP)
  Receive Date: 20231225
  Receipt Date: 20231225
  Transmission Date: 20240110
  Serious: Yes (Other)
  Sender: FDA-Public Use
  Company Number: JP-002147023-NVSJ2023JP018041

PATIENT
  Age: 78 Year
  Sex: Male

DRUGS (2)
  1. INDACATEROL [Suspect]
     Active Substance: INDACATEROL
     Indication: Product used for unknown indication
     Dosage: UNK
  2. INDACATEROL [Suspect]
     Active Substance: INDACATEROL
     Dosage: UNK
     Route: 048

REACTIONS (2)
  - Dementia [Unknown]
  - Incorrect route of product administration [Unknown]
